FAERS Safety Report 5250045-7 (Version None)
Quarter: 2007Q1

REPORT INFORMATION
  Report Type: 
  Country: None (occurrence: None)
  Receive Date: 20070228
  Receipt Date: 20060130
  Transmission Date: 20070707
  Serious: No
  Sender: FDA-Public Use
  Company Number: US-GLAXOSMITHKLINE-A0591511A

PATIENT
  Age: 57 Year
  Sex: Female

DRUGS (4)
  1. LAMICTAL [Suspect]
     Dosage: 75MG PER DAY
     Route: 048
     Dates: start: 20050712
  2. SEROQUEL [Concomitant]
  3. AMBIEN [Concomitant]
  4. XANAX [Concomitant]

REACTIONS (1)
  - BREAST PAIN [None]
